FAERS Safety Report 5151911-3 (Version None)
Quarter: 2006Q4

REPORT INFORMATION
  Report Type: 
  Country: None (occurrence: None)
  Receive Date: 20061107
  Receipt Date: 20061025
  Transmission Date: 20070319
  Serious: Yes (Hospitalization)
  Sender: FDA-Public Use
  Company Number: 2006BH014238

PATIENT
  Age: 35 Year
  Sex: Male

DRUGS (8)
  1. GAMMAGARD S/D [Suspect]
     Indication: POLYMYOSITIS
     Dosage: 90 GM; EVERY DAY;  IV
     Route: 042
     Dates: start: 20060628, end: 20060628
  2. GAMMAGARD S/D [Suspect]
  3. GAMMAGARD S/D [Suspect]
  4. CORTANCYL [Concomitant]
  5. ZANTAC [Concomitant]
  6. DIFFU K [Concomitant]
  7. ACTONEL [Concomitant]
  8. CACIT D3 [Concomitant]

REACTIONS (1)
  - DEEP VEIN THROMBOSIS [None]
